FAERS Safety Report 7521533-5 (Version None)
Quarter: 2011Q2

REPORT INFORMATION
  Report Type: 
  Country: None (occurrence: None)
  Receive Date: 20110603
  Receipt Date: 20110523
  Transmission Date: 20111010
  Serious: Yes (Other)
  Sender: FDA-Public Use
  Company Number: US-JNJFOC-20110510564

PATIENT
  Age: 49 Year
  Sex: Male
  Weight: 113.4 kg

DRUGS (4)
  1. GEODON [Suspect]
     Indication: SCHIZOAFFECTIVE DISORDER
     Route: 048
     Dates: start: 20080701
  2. PROLIXIN [Suspect]
     Indication: SCHIZOAFFECTIVE DISORDER
     Route: 065
     Dates: start: 19850101
  3. SEROQUEL [Concomitant]
     Route: 065
  4. TOPIRAMATE [Suspect]
     Indication: BIPOLAR DISORDER
     Route: 048
     Dates: start: 20080101

REACTIONS (2)
  - INSOMNIA [None]
  - TARDIVE DYSKINESIA [None]
